FAERS Safety Report 8244455-3 (Version None)
Quarter: 2012Q1

REPORT INFORMATION
  Report Type: 
  Country: None (occurrence: None)
  Receive Date: 20120329
  Receipt Date: 20120328
  Transmission Date: 20120608
  Serious: Yes (Death)
  Sender: FDA-Public Use
  Company Number: SE-JNJFOC-20120311695

PATIENT

DRUGS (30)
  1. DOXORUBICIN HCL [Suspect]
     Route: 042
  2. DOXORUBICIN HCL [Suspect]
     Route: 042
  3. CYCLOPHOSPHAMIDE [Suspect]
     Indication: DIFFUSE LARGE B-CELL LYMPHOMA
     Route: 065
  4. CYCLOPHOSPHAMIDE [Suspect]
     Route: 065
  5. PREDNISONE TAB [Suspect]
     Route: 065
  6. PREDNISONE TAB [Suspect]
     Route: 065
  7. PREDNISONE TAB [Suspect]
     Route: 065
  8. PREDNISONE TAB [Suspect]
     Route: 065
  9. MITOXANTRONE [Suspect]
     Route: 065
  10. MITOXANTRONE [Suspect]
     Route: 065
  11. DOXORUBICIN HCL [Suspect]
     Route: 042
  12. VINCRISTINE [Suspect]
     Indication: DIFFUSE LARGE B-CELL LYMPHOMA
     Route: 065
  13. PREDNISONE TAB [Suspect]
     Route: 065
  14. MITOXANTRONE [Suspect]
     Route: 065
  15. DOXORUBICIN HCL [Suspect]
     Route: 042
  16. CYCLOPHOSPHAMIDE [Suspect]
     Route: 065
  17. VINCRISTINE [Suspect]
     Route: 065
  18. CYCLOPHOSPHAMIDE [Suspect]
     Route: 065
  19. MITOXANTRONE [Suspect]
     Indication: DIFFUSE LARGE B-CELL LYMPHOMA
     Route: 065
  20. MITOXANTRONE [Suspect]
     Route: 065
  21. DOXORUBICIN HCL [Suspect]
     Indication: DIFFUSE LARGE B-CELL LYMPHOMA
     Route: 042
  22. DOXORUBICIN HCL [Suspect]
     Route: 042
  23. VINCRISTINE [Suspect]
     Route: 065
  24. PREDNISONE TAB [Suspect]
     Indication: DIFFUSE LARGE B-CELL LYMPHOMA
     Route: 065
  25. CYCLOPHOSPHAMIDE [Suspect]
     Route: 065
  26. CYCLOPHOSPHAMIDE [Suspect]
     Route: 065
  27. VINCRISTINE [Suspect]
     Route: 065
  28. VINCRISTINE [Suspect]
     Route: 065
  29. VINCRISTINE [Suspect]
     Route: 065
  30. MITOXANTRONE [Suspect]
     Route: 065

REACTIONS (1)
  - CARDIAC FAILURE [None]
